FAERS Safety Report 12058898 (Version 1)
Quarter: 2016Q1

REPORT INFORMATION
  Report Type: Report from Study
  Country: US (occurrence: US)
  Receive Date: 20160209
  Receipt Date: 20160209
  Transmission Date: 20160526
  Serious: No
  Sender: FDA-Public Use
  Company Number: US-ABBVIE-15P-163-1495442-00

PATIENT
  Sex: Female

DRUGS (2)
  1. HUMIRA [Suspect]
     Active Substance: ADALIMUMAB
     Route: 065
  2. HUMIRA [Suspect]
     Active Substance: ADALIMUMAB
     Indication: PSORIATIC ARTHROPATHY
     Route: 065

REACTIONS (6)
  - Asthenia [Recovered/Resolved]
  - Drug ineffective [Recovering/Resolving]
  - Rash macular [Unknown]
  - Inappropriate schedule of drug administration [Recovered/Resolved]
  - Injection site pain [Recovering/Resolving]
  - Pain [Unknown]
